FAERS Safety Report 4685800-5 (Version None)
Quarter: 2005Q2

REPORT INFORMATION
  Report Type: 
  Country: None (occurrence: None)
  Receive Date: 20050606
  Receipt Date: 20050606
  Transmission Date: 20051028
  Serious: No
  Sender: FDA-Public Use
  Company Number: None

PATIENT
  Age: 19 Year
  Sex: Male
  Weight: 75.2971 kg

DRUGS (1)
  1. LEVOTHYROXINE 50 MG [Suspect]
     Indication: HYPERTHYROIDISM
     Dosage: 1 PO QD
     Route: 048

REACTIONS (3)
  - CONDITION AGGRAVATED [None]
  - PHARMACEUTICAL PRODUCT COMPLAINT [None]
  - THYROID FUNCTION TEST ABNORMAL [None]
